FAERS Safety Report 7933205-3 (Version None)
Quarter: 2011Q4

REPORT INFORMATION
  Report Type: 
  Country: None (occurrence: None)
  Receive Date: 20111122
  Receipt Date: 20111115
  Transmission Date: 20120403
  Serious: Yes (Hospitalization)
  Sender: FDA-Public Use
  Company Number: US-ACTELION-A-NJ2011-55596

PATIENT

DRUGS (3)
  1. TRACLEER [Suspect]
     Indication: PULMONARY ARTERIAL HYPERTENSION
     Dosage: UNK
     Route: 048
     Dates: start: 20110816, end: 20110101
  2. TRACLEER [Suspect]
     Dosage: UNK
     Route: 048
     Dates: start: 20111101
  3. REVATIO [Concomitant]

REACTIONS (2)
  - PNEUMONIA [None]
  - HEPATIC ENZYME INCREASED [None]
